FAERS Safety Report 8080260-9 (Version None)
Quarter: 2012Q1

REPORT INFORMATION
  Report Type: 
  Country: None (occurrence: None)
  Receive Date: 20120130
  Receipt Date: 20120123
  Transmission Date: 20120608
  Serious: Yes (Hospitalization)
  Sender: FDA-Public Use
  Company Number: IT-TEVA-319679ISR

PATIENT
  Sex: Female

DRUGS (6)
  1. ACETYLSALICYLIC ACID SRT [Concomitant]
     Route: 048
  2. FOLIC ACID [Concomitant]
  3. LANSOPRAZOLE [Concomitant]
  4. COLECALCIFEROL [Concomitant]
  5. CALCIUM CARBONATE W/COLECALCIFEROL [Concomitant]
  6. DICLOFENAC [Suspect]
     Indication: PAIN
     Route: 048
     Dates: start: 20111101, end: 20111117

REACTIONS (1)
  - HAEMORRHAGE [None]
